FAERS Safety Report 17564210 (Version 2)
Quarter: 2020Q1

REPORT INFORMATION
  Report Type: Spontaneous
  Country: FR (occurrence: FR)
  Receive Date: 20200320
  Receipt Date: 20200330
  Transmission Date: 20200409
  Serious: Yes (Hospitalization)
  Sender: FDA-Public Use
  Company Number: FR-ACCORD-176551

PATIENT
  Age: 67 Year
  Sex: Male
  Weight: 48 kg

DRUGS (14)
  1. ALPRAZOLAM EG [Concomitant]
     Active Substance: ALPRAZOLAM
     Dosage: STRENGTH: 0.25 MG
  2. PRIMPERAN [Concomitant]
     Active Substance: METOCLOPRAMIDE HYDROCHLORIDE
  3. FUMAFER [Concomitant]
     Active Substance: FERROUS FUMARATE
     Dosage: STRENGTH: 66 MG
  4. SOMATULINE [Concomitant]
     Active Substance: LANREOTIDE ACETATE
  5. IMIPENEM AND CILASTATIN [Suspect]
     Active Substance: CILASTATIN SODIUM\IMIPENEM
     Indication: STAPHYLOCOCCAL BACTERAEMIA
     Route: 042
     Dates: start: 20200217, end: 20200225
  6. LOVENOX [Concomitant]
     Active Substance: ENOXAPARIN SODIUM
  7. MORPHINE RENAUDIN [Concomitant]
     Active Substance: MORPHINE
  8. LANSOPRAZOLE MYLAN [Concomitant]
     Active Substance: LANSOPRAZOLE
  9. DAPTOMYCIN ACCORD [Suspect]
     Active Substance: DAPTOMYCIN
     Indication: STAPHYLOCOCCAL BACTERAEMIA
     Route: 042
     Dates: start: 20200221, end: 20200226
  10. PHOSPHONEUROS [Concomitant]
     Active Substance: CALCIUM PHOSPHATE, DIBASIC, ANHYDROUS\MAGNESIUM GLYCEROPHOSPHATE\PHOSPHORIC ACID\SODIUM PHOSPHATE, DIBASIC
  11. FUROSEMIDE RENAUDIN [Concomitant]
     Active Substance: FUROSEMIDE
     Dosage: STRENGTH: 20 MG/2 ML
  12. FLECAINE [Concomitant]
     Active Substance: FLECAINIDE
     Dosage: STRENGTH: 100 MG
  13. PARACETAMOL B BRAUN [Concomitant]
     Active Substance: ACETAMINOPHEN
     Dosage: STRENGTH: 10 MG/ ML
  14. ZINFORO [Suspect]
     Active Substance: CEFTAROLINE FOSAMIL
     Indication: STAPHYLOCOCCAL BACTERAEMIA
     Dosage: STRENGTH: 600 MG
     Route: 042
     Dates: start: 20200226, end: 20200306

REACTIONS (3)
  - Encephalopathy [Recovered/Resolved]
  - Somnolence [Recovering/Resolving]
  - Disorientation [Recovered/Resolved]

NARRATIVE: CASE EVENT DATE: 20200303
